FAERS Safety Report 9643688 (Version 2)
Quarter: 2014Q1

REPORT INFORMATION
  Report Type: Report from Study
  Country: FR (occurrence: FR)
  Receive Date: 20131024
  Receipt Date: 20140122
  Transmission Date: 20141002
  Serious: Yes (Hospitalization)
  Sender: FDA-Public Use
  Company Number: FR-BRISTOL-MYERS SQUIBB COMPANY-19608652

PATIENT
  Age: 54 Year
  Sex: Female

DRUGS (17)
  1. PACLITAXEL [Suspect]
     Indication: BREAST CANCER
     Route: 042
     Dates: start: 20130627, end: 20130904
  2. PERTUZUMAB [Suspect]
     Indication: BREAST CANCER
     Dosage: MAIN DOSE:28AUG13-420MG 1IN 21 D
     Route: 042
     Dates: start: 20130627
  3. TRASTUZUMAB [Suspect]
     Indication: BREAST CANCER
     Dosage: MAIN DOSE:28AG13-504MG-6MG/KG 1 IN 3 WK-ONG
     Route: 042
     Dates: start: 20130627
  4. IMODIUM [Concomitant]
     Dates: start: 20130629, end: 20130630
  5. FERINJECT [Concomitant]
     Dates: start: 20130828, end: 20130828
  6. SEROPLEX [Concomitant]
     Dates: start: 2013
  7. DIAMICRON [Concomitant]
     Dates: start: 2013
  8. MOPRAL [Concomitant]
     Dates: start: 2013
  9. AMLOR [Concomitant]
     Dates: start: 2013
  10. ASPEGIC [Concomitant]
     Dates: start: 2013
  11. CRESTOR [Concomitant]
     Dates: start: 2013
  12. ZOPHREN [Concomitant]
     Indication: PROPHYLAXIS
     Dates: start: 20130627
  13. SOLU-MEDROL [Concomitant]
     Indication: PROPHYLAXIS
     Dates: start: 20130627
  14. POLARAMINE [Concomitant]
     Indication: PROPHYLAXIS
     Dates: start: 20130627
  15. AZANTAC [Concomitant]
     Indication: PROPHYLAXIS
     Dates: start: 20130627
  16. GLUCOPHAGE [Concomitant]
     Dosage: 2013-?2 GRAM
     Dates: end: 20130919
  17. XYZALL [Concomitant]
     Dosage: 1DF:1PILL
     Dates: start: 20130828

REACTIONS (1)
  - Renal failure [Recovered/Resolved]
